FAERS Safety Report 6520065-0 (Version None)
Quarter: 2009Q4

REPORT INFORMATION
  Report Type: 
  Country: None (occurrence: None)
  Receive Date: 20091229
  Receipt Date: 20091215
  Transmission Date: 20100525
  Serious: Yes (Hospitalization)
  Sender: FDA-Public Use
  Company Number: PHHY2009SE55518

PATIENT
  Sex: Female

DRUGS (1)
  1. CARBAMAZEPINE [Suspect]
     Dosage: UNK

REACTIONS (4)
  - BLOOD ALBUMIN DECREASED [None]
  - DIZZINESS [None]
  - DRUG LEVEL DECREASED [None]
  - NAUSEA [None]
